FAERS Safety Report 17939166 (Version 1)
Quarter: 2020Q2

REPORT INFORMATION
  Report Type: Spontaneous
  Country: DE (occurrence: DE)
  Receive Date: 20200625
  Receipt Date: 20200625
  Transmission Date: 20200714
  Serious: Yes (Hospitalization)
  Sender: FDA-Public Use
  Company Number: DE-TEVA-2020-DE-1790650

PATIENT
  Age: 97 Year
  Sex: Male

DRUGS (10)
  1. PANTOPRAZOL [Concomitant]
     Active Substance: PANTOPRAZOLE SODIUM
     Dosage: 40 MILLIGRAM DAILY;  1-0-0-0,
  2. ALLOPURINOL. [Concomitant]
     Active Substance: ALLOPURINOL
     Dosage: 300 MG, 0.5-0-0-0, UNIT DOSE: 150 MG
  3. SPIRONOLACTON [Concomitant]
     Active Substance: SPIRONOLACTONE
     Dosage: 25 MILLIGRAM DAILY;  1-0-0-0,
  4. ACETYLSALICYLICSAURE [Concomitant]
     Dosage: 100 MILLIGRAM DAILY;  0-1-0-0,
  5. TAMSULOSIN [Concomitant]
     Active Substance: TAMSULOSIN
     Dosage: .4 MILLIGRAM DAILY;  0-0-1-0
  6. MORPHIN [Suspect]
     Active Substance: MORPHINE
     Dosage: 10 MILLIGRAM DAILY; ONCE ON 01032020,
     Route: 042
     Dates: start: 20200301
  7. FUROSEMID [Concomitant]
     Active Substance: FUROSEMIDE
     Dosage: 40 MG, 1-0.5-0-0, UNIT DOSE: 60 MG
  8. SIMVASTATIN. [Concomitant]
     Active Substance: SIMVASTATIN
     Dosage: 20 MILLIGRAM DAILY;  0-0-1-0,
  9. ROXITHROMYCIN [Concomitant]
     Active Substance: ROXITHROMYCIN
     Indication: PNEUMONIA
     Dosage: SINCE 29022020
     Dates: start: 20200229
  10. ISOSORBIDMONONITRAT [Concomitant]
     Active Substance: ISOSORBIDE MONONITRATE
     Dosage: 40 MILLIGRAM DAILY; 1-0-0-0,

REACTIONS (5)
  - Dyspnoea [Unknown]
  - Agitation [Unknown]
  - Pyrexia [Unknown]
  - Cough [Unknown]
  - Language disorder [Unknown]

NARRATIVE: CASE EVENT DATE: 20200229
